FAERS Safety Report 5621200-9 (Version None)
Quarter: 2008Q1

REPORT INFORMATION
  Report Type: 
  Country: None (occurrence: None)
  Receive Date: 20080114
  Receipt Date: 20061213
  Transmission Date: 20080703
  Serious: Yes (Other)
  Sender: FDA-Public Use
  Company Number: A03200607594

PATIENT
  Age: 72 Year
  Sex: Female
  Weight: 70.3075 kg

DRUGS (5)
  1. PLAVIX [Suspect]
     Indication: MYOCARDIAL INFARCTION
     Dosage: 75 MG QD - ORAL
     Route: 048
     Dates: start: 20040209, end: 20050101
  2. PLAVIX [Suspect]
     Indication: STENT PLACEMENT
     Dosage: 75 MG QD - ORAL
     Route: 048
     Dates: start: 20040209, end: 20050101
  3. PLAVIX [Suspect]
     Indication: STENT PLACEMENT
     Dosage: 75 MQ QD - ORAL
     Route: 048
     Dates: start: 20050101, end: 20050201
  4. RAMIPRIL [Concomitant]
  5. METOPROLOL SUCCINATE [Concomitant]

REACTIONS (1)
  - EYE HAEMORRHAGE [None]
